FAERS Safety Report 25249480 (Version 1)
Quarter: 2025Q2

REPORT INFORMATION
  Report Type: Spontaneous
  Country: US (occurrence: US)
  Receive Date: 20250429
  Receipt Date: 20250429
  Transmission Date: 20250717
  Serious: No
  Sender: CHATTEM
  Company Number: US-SA-2025SA115709

PATIENT
  Age: 8 Month
  Sex: Female

DRUGS (4)
  1. ALLEGRA [Suspect]
     Active Substance: FEXOFENADINE HYDROCHLORIDE
     Indication: Hypersensitivity
     Dosage: 180 MG, QD (180 MG 1 DOSE EVERY 1 DAY)
     Route: 048
     Dates: start: 20190101
  2. ALLEGRA [Suspect]
     Active Substance: FEXOFENADINE HYDROCHLORIDE
     Indication: Urticaria
  3. LAMOTRIGINE [Concomitant]
     Active Substance: LAMOTRIGINE
     Indication: Product used for unknown indication
  4. SERTRALINE [Concomitant]
     Active Substance: SERTRALINE HYDROCHLORIDE
     Indication: Product used for unknown indication

REACTIONS (5)
  - Ear infection [Recovered/Resolved]
  - Eczema [Recovered/Resolved]
  - Rhinorrhoea [Recovered/Resolved]
  - Nasal congestion [Recovered/Resolved]
  - Exposure via breast milk [Unknown]

NARRATIVE: CASE EVENT DATE: 20250101
